FAERS Safety Report 20546577 (Version 3)
Quarter: 2023Q1

REPORT INFORMATION
  Report Type: Spontaneous
  Country: US (occurrence: None)
  Receive Date: 20220303
  Receipt Date: 20230217
  Transmission Date: 20230417
  Serious: Yes (Hospitalization)
  Sender: FDA-Public Use
  Company Number: US-ROCHE-3036190

PATIENT
  Age: 65 Year
  Sex: Male
  Weight: 85 kg

DRUGS (5)
  1. ITACITINIB [Suspect]
     Active Substance: ITACITINIB
     Indication: Bronchiolitis obliterans syndrome
     Dosage: LAST DOSE PRIOR TO THE SERIOUS ADVERSE EVENT (SAE) WAS TAKEN ON 06FEB2022.
     Route: 048
     Dates: start: 20210323, end: 20220207
  2. ITACITINIB [Suspect]
     Active Substance: ITACITINIB
     Route: 048
     Dates: start: 20220627
  3. TACROLIMUS [Suspect]
     Active Substance: TACROLIMUS
     Indication: Product used for unknown indication
     Dosage: ONGOING: YES
     Route: 065
     Dates: start: 20220119
  4. VALCYTE [Suspect]
     Active Substance: VALGANCICLOVIR HYDROCHLORIDE
     Indication: Bronchiolitis obliterans syndrome
     Route: 065
     Dates: start: 20220107
  5. PREDNISONE [Concomitant]
     Active Substance: PREDNISONE
     Dates: start: 20190125

REACTIONS (1)
  - Cytomegalovirus viraemia [Recovered/Resolved]

NARRATIVE: CASE EVENT DATE: 20220207
